FAERS Safety Report 6879844-2 (Version None)
Quarter: 2010Q3

REPORT INFORMATION
  Report Type: 
  Country: None (occurrence: None)
  Receive Date: 20100728
  Receipt Date: 20100719
  Transmission Date: 20110219
  Serious: Yes (Hospitalization)
  Sender: FDA-Public Use
  Company Number: US-TEVA-241841USA

PATIENT
  Age: 64 Year
  Sex: Female

DRUGS (1)
  1. DOXORUBICIN HCL [Suspect]

REACTIONS (1)
  - BILIARY FISTULA [None]
